FAERS Safety Report 7504425-7 (Version None)
Quarter: 2011Q2

REPORT INFORMATION
  Report Type: 
  Country: None (occurrence: None)
  Receive Date: 20110525
  Receipt Date: 20110516
  Transmission Date: 20111010
  Serious: Yes (Other)
  Sender: FDA-Public Use
  Company Number: JP-NAPPMUNDI-MAG-2011-0001484

PATIENT
  Sex: Female

DRUGS (10)
  1. OXYCODONE HCL [Suspect]
     Dosage: 30 MG, DAILY
     Route: 048
     Dates: end: 20110124
  2. OXYCODONE HCL [Suspect]
     Indication: CANCER PAIN
     Dosage: 40 MG, DAILY
     Route: 048
     Dates: start: 20110124, end: 20110125
  3. DIOVAN [Concomitant]
     Dosage: UNK
     Route: 048
     Dates: start: 20110112
  4. ETODOLAC [Concomitant]
     Dosage: UNK
     Route: 048
     Dates: start: 20110112
  5. MUCOSTA [Concomitant]
     Dosage: UNK
     Route: 048
     Dates: start: 20110112
  6. OMEPRAL                            /00661201/ [Concomitant]
     Dosage: UNK
     Route: 048
     Dates: start: 20110112
  7. AMLODIPINE [Concomitant]
     Dosage: UNK
     Route: 048
     Dates: start: 20110112
  8. DORAL [Concomitant]
     Dosage: UNK
     Route: 048
     Dates: start: 20110112
  9. ZOLOFT [Concomitant]
     Dosage: UNK
     Route: 048
     Dates: start: 20110112
  10. MAGMITT [Concomitant]
     Dosage: UNK
     Route: 048
     Dates: start: 20110114

REACTIONS (1)
  - DELIRIUM [None]
